FAERS Safety Report 14013340 (Version 2)
Quarter: 2017Q3

REPORT INFORMATION
  Report Type: Spontaneous
  Country: GB (occurrence: GB)
  Receive Date: 20170926
  Receipt Date: 20170928
  Transmission Date: 20171128
  Serious: Yes (Hospitalization)
  Sender: FDA-Public Use
  Company Number: GB-PFIZER INC-2017406510

PATIENT
  Sex: Male
  Weight: 2 kg

DRUGS (5)
  1. PROSTIN E2 [Suspect]
     Active Substance: DINOPROSTONE
     Dosage: 62.5 UG, HOURLY, 24 HOURS AFTER TREATMENT START
     Route: 048
  2. PROSTIN E2 [Suspect]
     Active Substance: DINOPROSTONE
     Dosage: 62.5 UG, EVERY THREE HOURS
     Route: 048
  3. PROSTIN E2 [Suspect]
     Active Substance: DINOPROSTONE
     Indication: CONGENITAL TRICUSPID VALVE ATRESIA
     Dosage: 125 UG, HOURLY
     Route: 048
  4. PROSTIN E2 [Suspect]
     Active Substance: DINOPROSTONE
     Dosage: 500 UG, UNK
     Route: 048
  5. PROSTIN E2 [Suspect]
     Active Substance: DINOPROSTONE
     Dosage: UNK, EVERY 4 HRS
     Route: 048

REACTIONS (2)
  - Product use in unapproved indication [Unknown]
  - Bradycardia [Recovering/Resolving]
